FAERS Safety Report 7770880-0 (Version None)
Quarter: 2011Q3

REPORT INFORMATION
  Report Type: 
  Country: None (occurrence: None)
  Receive Date: 20110922
  Receipt Date: 20100115
  Transmission Date: 20111222
  Serious: No
  Sender: FDA-Public Use
  Company Number: US-ASTRAZENECA-2009SE20285

PATIENT
  Age: 20590 Day
  Sex: Female
  Weight: 77.1 kg

DRUGS (12)
  1. SEROQUEL [Suspect]
     Dosage: 1-3 QHS
     Route: 048
     Dates: start: 20061113
  2. HALDOL [Concomitant]
  3. AMBIEN CR [Concomitant]
  4. KLOPOPIN [Concomitant]
     Dates: start: 20061113
  5. SEROQUEL [Suspect]
     Indication: INSOMNIA
     Route: 048
     Dates: start: 20030101
  6. PROZAC [Concomitant]
  7. SEROQUEL [Suspect]
     Dosage: 1-3 QHS
     Route: 048
     Dates: start: 20061113
  8. VISTARIL [Concomitant]
  9. PREMARIN [Concomitant]
     Dates: start: 20070123
  10. SEROQUEL [Suspect]
     Indication: PANIC ATTACK
     Route: 048
     Dates: start: 20030101
  11. SEROQUEL [Suspect]
     Dosage: 1-3 QHS
     Route: 048
     Dates: start: 20061113
  12. SEROQUEL [Suspect]
     Indication: SLEEP DISORDER
     Route: 048
     Dates: start: 20030101

REACTIONS (2)
  - TYPE 2 DIABETES MELLITUS [None]
  - OBESITY [None]
